FAERS Safety Report 12769705 (Version 2)
Quarter: 2016Q4

REPORT INFORMATION
  Report Type: Spontaneous
  Country: US (occurrence: US)
  Receive Date: 20160922
  Receipt Date: 20161104
  Transmission Date: 20170207
  Serious: No
  Sender: FDA-Public Use
  Company Number: US-ASTRAZENECA-2016SE95914

PATIENT
  Age: 15 Year
  Sex: Male
  Weight: 59 kg

DRUGS (1)
  1. PULMICORT FLEXHALER [Suspect]
     Active Substance: BUDESONIDE
     Indication: ASTHMA
     Dosage: 180 MCG, ONE PUFF TWICE PER DAY
     Route: 055
     Dates: start: 20160902

REACTIONS (4)
  - Chest discomfort [Not Recovered/Not Resolved]
  - Cough [Unknown]
  - Drug dose omission [Unknown]
  - Device malfunction [Unknown]
